FAERS Safety Report 13464140 (Version 1)
Quarter: 2017Q2

REPORT INFORMATION
  Report Type: Spontaneous
  Country: US (occurrence: US)
  Receive Date: 20170420
  Receipt Date: 20170420
  Transmission Date: 20170830
  Serious: Yes (Hospitalization, Other)
  Sender: FDA-Public Use
  Company Number: US-ROCHE-722553

PATIENT
  Age: 16 Year
  Sex: Male
  Weight: 68 kg

DRUGS (7)
  1. ACCUTANE [Suspect]
     Active Substance: ISOTRETINOIN
     Route: 065
  2. AMNESTEEM [Suspect]
     Active Substance: ISOTRETINOIN
     Indication: PRODUCT USED FOR UNKNOWN INDICATION
     Route: 065
  3. ACCUTANE [Suspect]
     Active Substance: ISOTRETINOIN
     Dosage: FROM 16 MAY 2005, 60 MG QD, FROM 16 JUN 2005, 20MG TWO PILL BID
     Route: 065
     Dates: start: 2005, end: 2006
  4. MESALAZINE [Concomitant]
     Active Substance: MESALAMINE
  5. ACCUTANE [Suspect]
     Active Substance: ISOTRETINOIN
     Indication: ACNE
     Dosage: FROM 13 APR 2005, 20 MG ONCE DAILY , FROM 02 MAY 2005, 40 MG ONCE DAILY
     Route: 065
  6. HUMIRA [Concomitant]
     Active Substance: ADALIMUMAB
  7. PREVACID [Concomitant]
     Active Substance: LANSOPRAZOLE

REACTIONS (9)
  - Gastrointestinal injury [Unknown]
  - Crohn^s disease [Unknown]
  - Inflammatory bowel disease [Unknown]
  - Uveitis [Unknown]
  - Irritable bowel syndrome [Unknown]
  - Arthralgia [Unknown]
  - Cyst [Unknown]
  - Epstein-Barr virus infection [Unknown]
  - Hand fracture [Unknown]

NARRATIVE: CASE EVENT DATE: 2004
